FAERS Safety Report 9904860 (Version 1)
Quarter: 2014Q1

REPORT INFORMATION
  Report Type: Spontaneous
  Country: CH (occurrence: CH)
  Receive Date: 20140218
  Receipt Date: 20140218
  Transmission Date: 20141002
  Serious: Yes (Hospitalization)
  Sender: FDA-Public Use
  Company Number: CH-PFIZER INC-2014041453

PATIENT
  Age: 85 Year
  Sex: Male

DRUGS (12)
  1. MORPHINE SULFATE [Suspect]
     Indication: PAIN
     Dosage: 10 MG, DAILY
     Route: 048
  2. PANTOPRAZOLE [Suspect]
     Indication: PROPHYLACTIC CHEMOTHERAPY
     Dosage: 20 MG, DAILY
     Route: 048
     Dates: start: 20131209, end: 20131213
  3. METFORMIN HCL [Suspect]
     Indication: TYPE 2 DIABETES MELLITUS
     Dosage: 500 MG, 2X/DAY
     Route: 048
  4. TILUR [Suspect]
     Indication: PAIN
     Dosage: 90 MG, DAILY
     Route: 048
     Dates: start: 20131209, end: 20131213
  5. CYMBALTA [Suspect]
     Indication: ANTIDEPRESSANT THERAPY
     Dosage: 60 MG, DAILY
     Route: 048
  6. SEROQUEL [Suspect]
     Indication: DEMENTIA
     Dosage: 200 MG, DAILY
     Route: 048
  7. HALDOL [Suspect]
     Indication: DEMENTIA
     Dosage: 0.5 MG, 3X/DAY
     Route: 048
  8. DISTRANEURIN [Suspect]
     Indication: SLEEP DISORDER
     Dosage: 300 MG, DAILY
     Route: 048
  9. EBIXA [Suspect]
     Indication: DEMENTIA
     Dosage: 20 MG, DAILY
     Route: 048
  10. METO ZEROK [Concomitant]
     Dosage: 12.5 MG, DAILY
  11. SINTROM [Concomitant]
     Dosage: ACCORDING TO PROTHROMBIN LEVEL
  12. DAFALGAN [Concomitant]
     Dosage: 1000 MG, 3X/DAY

REACTIONS (6)
  - Delirium [Recovering/Resolving]
  - Renal failure chronic [Recovered/Resolved]
  - Hyperkalaemia [Recovered/Resolved]
  - Type I hypersensitivity [Recovered/Resolved]
  - Rash erythematous [Recovered/Resolved]
  - Drug prescribing error [Recovered/Resolved]
